FAERS Safety Report 6424804-9 (Version None)
Quarter: 2009Q4

REPORT INFORMATION
  Report Type: 
  Country: None (occurrence: None)
  Receive Date: 20091103
  Receipt Date: 20091020
  Transmission Date: 20100525
  Serious: Yes (Other)
  Sender: FDA-Public Use
  Company Number: PHHY2009IT46321

PATIENT
  Age: 62 Year
  Sex: Female

DRUGS (3)
  1. TERBINAFINE HCL [Suspect]
     Indication: ONYCHOMYCOSIS
     Dosage: 250 MG,DAILY
     Route: 048
     Dates: start: 20090908, end: 20090917
  2. ATENOLOL [Concomitant]
  3. LOSAZID [Concomitant]

REACTIONS (1)
  - HALLUCINATION, VISUAL [None]
